FAERS Safety Report 13188667 (Version 1)
Quarter: 2017Q1

REPORT INFORMATION
  Report Type: Spontaneous
  Country: US (occurrence: US)
  Receive Date: 20170204
  Receipt Date: 20170204
  Transmission Date: 20170428
  Serious: No
  Sender: FDA-Public Use
  Company Number: None

PATIENT
  Age: 40 Year
  Sex: Male
  Weight: 99 kg

DRUGS (6)
  1. IBUPROFEN. [Concomitant]
     Active Substance: IBUPROFEN
  2. BELSOMRA [Concomitant]
     Active Substance: SUVOREXANT
  3. TRULICITY [Suspect]
     Active Substance: DULAGLUTIDE
     Indication: TYPE 2 DIABETES MELLITUS
     Dosage: ?          QUANTITY:4 INJECTION(S);OTHER FREQUENCY:ONCE WEEKLY;?
     Route: 058
     Dates: start: 20170127, end: 20170127
  4. SIMVASTATIN. [Concomitant]
     Active Substance: SIMVASTATIN
  5. METFORMIN [Concomitant]
     Active Substance: METFORMIN HYDROCHLORIDE
  6. VICTOZA [Concomitant]
     Active Substance: LIRAGLUTIDE

REACTIONS (11)
  - Decreased appetite [None]
  - Fatigue [None]
  - Eructation [None]
  - Asthenia [None]
  - Dizziness [None]
  - Depression [None]
  - Lethargy [None]
  - Gastrooesophageal reflux disease [None]
  - Pain [None]
  - Abdominal discomfort [None]
  - Impaired work ability [None]

NARRATIVE: CASE EVENT DATE: 20170127
